FAERS Safety Report 4587661-1 (Version None)
Quarter: 2005Q1

REPORT INFORMATION
  Report Type: 
  Country: None (occurrence: None)
  Receive Date: 20050211
  Receipt Date: 20050131
  Transmission Date: 20050727
  Serious: No
  Sender: FDA-Public Use
  Company Number: 2005-BP-01428BP

PATIENT
  Sex: Male

DRUGS (2)
  1. ATROVENT [Suspect]
     Indication: ASTHMA
     Dosage: 18 MCG, IH
     Route: 055
  2. ATROVENT [Suspect]
     Dosage: SEE TEXT, 0.02% (500 MCG/2.5ML), IH
     Route: 055

REACTIONS (2)
  - ASTHMA [None]
  - CONDITION AGGRAVATED [None]
